FAERS Safety Report 7465306-0 (Version None)
Quarter: 2011Q2

REPORT INFORMATION
  Report Type: 
  Country: None (occurrence: None)
  Receive Date: 20110509
  Receipt Date: 20110426
  Transmission Date: 20111010
  Serious: Yes (Other)
  Sender: FDA-Public Use
  Company Number: CL-ASTRAZENECA-2011SE25487

PATIENT
  Age: 68 Year
  Sex: Female

DRUGS (5)
  1. SERETIDE [Concomitant]
     Dosage: SPORADIC
     Dates: start: 20050101
  2. FLUICOR ASA [Concomitant]
     Indication: HYPERTENSION
  3. SYMBICORT [Suspect]
     Dosage: UNKNOWN DOSE BID
     Route: 055
     Dates: start: 20100801
  4. MICARDIS [Concomitant]
     Indication: HYPERTENSION
  5. DILTIAZEM HCL [Concomitant]
     Indication: HYPERTENSION

REACTIONS (3)
  - TACHYCARDIA [None]
  - SYNCOPE [None]
  - HYPOTENSION [None]
